FAERS Safety Report 18374553 (Version 2)
Quarter: 2020Q4

REPORT INFORMATION
  Report Type: Spontaneous
  Country: JP (occurrence: JP)
  Receive Date: 20201013
  Receipt Date: 20201026
  Transmission Date: 20210114
  Serious: Yes (Other)
  Sender: FDA-Public Use
  Company Number: JP-ROCHE-2692398

PATIENT
  Age: 75 Year
  Sex: Female

DRUGS (1)
  1. BEOVU [Suspect]
     Active Substance: BROLUCIZUMAB-DBLL
     Indication: AGE-RELATED MACULAR DEGENERATION
     Dosage: 6 MG,  KIT FOR INTRAVITREAL INJECTION 120MG/ML
     Route: 031
     Dates: start: 20200612, end: 20200612

REACTIONS (6)
  - Retinal exudates [Recovering/Resolving]
  - Visual acuity reduced [Recovered/Resolved]
  - Vitreous opacities [Recovered/Resolved]
  - Retinal vasculitis [Recovered/Resolved]
  - Vision blurred [Recovered/Resolved]
  - Hyperaemia [Recovered/Resolved]

NARRATIVE: CASE EVENT DATE: 20200622
